FAERS Safety Report 22228298 (Version 1)
Quarter: 2023Q2

REPORT INFORMATION
  Report Type: Report from Study
  Country: TW (occurrence: None)
  Receive Date: 20230419
  Receipt Date: 20230419
  Transmission Date: 20230721
  Serious: Yes (Other)
  Sender: FDA-Public Use
  Company Number: 2023A085865

PATIENT
  Age: 59 Year
  Sex: Female

DRUGS (1)
  1. IMFINZI [Suspect]
     Active Substance: DURVALUMAB
     Dosage: 240.0MG UNKNOWN
     Route: 042
     Dates: start: 20211213

REACTIONS (4)
  - Asthenia [Recovering/Resolving]
  - Mental fatigue [Recovering/Resolving]
  - Metastases to stomach [Recovered/Resolved]
  - Metastases to spine [Recovered/Resolved]
